FAERS Safety Report 24774698 (Version 2)
Quarter: 2025Q1

REPORT INFORMATION
  Report Type: Report from Study
  Country: US (occurrence: US)
  Receive Date: 20241226
  Receipt Date: 20250115
  Transmission Date: 20250409
  Serious: Yes (Hospitalization, Other)
  Sender: ABBVIE
  Company Number: US-ABBVIE-6064598

PATIENT
  Age: 76 Year
  Sex: Female
  Weight: 91 kg

DRUGS (2)
  1. LINZESS [Suspect]
     Active Substance: LINACLOTIDE
     Indication: Constipation
     Dosage: FORM STRENGTH: 145MCG, LAST ADMIN DATE: 2024
     Route: 048
     Dates: start: 202410, end: 202411
  2. HYDRALAZINE [Concomitant]
     Active Substance: HYDRALAZINE HYDROCHLORIDE
     Indication: Hypertension

REACTIONS (3)
  - Intestinal obstruction [Recovered/Resolved]
  - Pain [Recovering/Resolving]
  - Faecaloma [Recovered/Resolved]

NARRATIVE: CASE EVENT DATE: 20240101
